FAERS Safety Report 4645931-2 (Version None)
Quarter: 2005Q2

REPORT INFORMATION
  Report Type: 
  Country: None (occurrence: None)
  Receive Date: 20050427
  Receipt Date: 20050208
  Transmission Date: 20051028
  Serious: Yes (Hospitalization)
  Sender: FDA-Public Use
  Company Number: US-AMGEN-KDL113125

PATIENT
  Sex: Female

DRUGS (1)
  1. PROCRIT [Suspect]
     Indication: ANAEMIA
     Dates: start: 20050101

REACTIONS (4)
  - ASTHENIA [None]
  - DYSPNOEA [None]
  - HOSPITALISATION [None]
  - HYPERHIDROSIS [None]
